FAERS Safety Report 14534448 (Version 1)
Quarter: 2018Q1

REPORT INFORMATION
  Report Type: Spontaneous
  Country: TR (occurrence: TR)
  Receive Date: 20180215
  Receipt Date: 20180215
  Transmission Date: 20180509
  Serious: Yes (Hospitalization, Other)
  Sender: FDA-Public Use
  Company Number: TR-ASTELLAS-2018US007644

PATIENT
  Age: 29 Year
  Sex: Female

DRUGS (1)
  1. TACROLIMUS. [Suspect]
     Active Substance: TACROLIMUS
     Indication: LIVER TRANSPLANT
     Dosage: UNK, UNKNOWN FREQ. (BLOOD LEVEL OF 2.5-10.5 NG/ML)
     Route: 065

REACTIONS (4)
  - Hepatic encephalopathy [Unknown]
  - Acute hepatic failure [Unknown]
  - Tonic clonic movements [Unknown]
  - Exposure during pregnancy [Unknown]
